FAERS Safety Report 7479431-1 (Version None)
Quarter: 2011Q2

REPORT INFORMATION
  Report Type: 
  Country: None (occurrence: None)
  Receive Date: 20110513
  Receipt Date: 20110509
  Transmission Date: 20111010
  Serious: Yes (Other)
  Sender: FDA-Public Use
  Company Number: CN-GENZYME-FLUD-1001151

PATIENT

DRUGS (2)
  1. CYCLOPHOSPHAMIDE [Suspect]
     Indication: B-CELL LYMPHOMA
     Dosage: 300 MG/M2, QD 1-3X
     Route: 042
  2. FLUDARA [Suspect]
     Indication: B-CELL LYMPHOMA
     Dosage: 25-30 MG/M2, QD 1-3X
     Route: 042

REACTIONS (12)
  - DIFFUSE LARGE B-CELL LYMPHOMA [None]
  - LIVER INJURY [None]
  - HEPATITIS C [None]
  - LUNG INFECTION [None]
  - GASTROINTESTINAL TOXICITY [None]
  - URINARY TRACT INFECTION [None]
  - UPPER RESPIRATORY TRACT INFECTION [None]
  - BONE MARROW FAILURE [None]
  - HERPES ZOSTER [None]
  - HEPATITIS B [None]
  - ORAL INFECTION [None]
  - IMMUNOSUPPRESSION [None]
